FAERS Safety Report 14713370 (Version 4)
Quarter: 2018Q2

REPORT INFORMATION
  Report Type: Report from Study
  Country: BE (occurrence: BE)
  Receive Date: 20180404
  Receipt Date: 20180619
  Transmission Date: 20180711
  Serious: Yes (Other)
  Sender: FDA-Public Use
  Company Number: BE-TAKEDA-2018TUS003627

PATIENT
  Sex: Female

DRUGS (1)
  1. VEDOLIZUMAB [Suspect]
     Active Substance: VEDOLIZUMAB
     Indication: CROHN^S DISEASE
     Dosage: 300 MG, UNK
     Route: 042
     Dates: start: 20180110, end: 201802

REACTIONS (7)
  - Arthritis [Unknown]
  - Weight increased [Unknown]
  - Peripheral swelling [Unknown]
  - Wolff-Parkinson-White syndrome [Unknown]
  - Ankylosing spondylitis [Unknown]
  - Weight loss poor [Unknown]
  - Arthralgia [Not Recovered/Not Resolved]
